FAERS Safety Report 8134200-4 (Version None)
Quarter: 2012Q1

REPORT INFORMATION
  Report Type: 
  Country: None (occurrence: None)
  Receive Date: 20120209
  Receipt Date: 20120202
  Transmission Date: 20120608
  Serious: Yes (Other)
  Sender: FDA-Public Use
  Company Number: AUR-APL-2012-00760

PATIENT
  Sex: Female

DRUGS (4)
  1. ZERIT [Suspect]
     Indication: ANTIRETROVIRAL THERAPY
     Dosage: (60 MG, 1 D), ORAL
     Route: 048
     Dates: start: 20110831
  2. COMBIVIR [Suspect]
     Indication: ANTIRETROVIRAL THERAPY
     Dosage: ORAL
     Route: 048
     Dates: start: 20110812, end: 20110910
  3. SUSTIVA [Suspect]
     Indication: ANTIRETROVIRAL THERAPY
     Dosage: UNKNOWN
     Dates: start: 20110712, end: 20110812
  4. LAMIVUDINE [Suspect]
     Indication: ANTIRETROVIRAL THERAPY
     Dosage: (300 MG, 1 D), ORAL
     Route: 048
     Dates: start: 20110831

REACTIONS (2)
  - MATERNAL EXPOSURE DURING PREGNANCY [None]
  - ABORTION SPONTANEOUS [None]
